FAERS Safety Report 5896359-9 (Version None)
Quarter: 2008Q3

REPORT INFORMATION
  Report Type: 
  Country: None (occurrence: None)
  Receive Date: 20080924
  Receipt Date: 20070924
  Transmission Date: 20090109
  Serious: Yes (Other)
  Sender: FDA-Public Use
  Company Number: US-ASTRAZENECA-2007UW22439

PATIENT
  Age: 60 Year
  Sex: Female
  Weight: 136.1 kg

DRUGS (3)
  1. SEROQUEL [Suspect]
     Indication: BIPOLAR I DISORDER
     Route: 048
  2. TWO HEART PILLS [Concomitant]
  3. WATER PILL [Concomitant]

REACTIONS (9)
  - ASTHENIA [None]
  - CARDIAC FAILURE CONGESTIVE [None]
  - DRUG INEFFECTIVE [None]
  - FEELING ABNORMAL [None]
  - HUNGER [None]
  - MOOD SWINGS [None]
  - THIRST [None]
  - TREMOR [None]
  - WEIGHT INCREASED [None]
